FAERS Safety Report 10186778 (Version 1)
Quarter: 2014Q2

REPORT INFORMATION
  Report Type: Spontaneous
  Country: IE (occurrence: IE)
  Receive Date: 20140521
  Receipt Date: 20140521
  Transmission Date: 20141212
  Serious: Yes (Hospitalization)
  Sender: FDA-Public Use
  Company Number: IE-JNJFOC-20140509198

PATIENT
  Age: 2 Year
  Sex: Male

DRUGS (2)
  1. CALPOL SUGAR FREE INFANT SUSPENSION [Suspect]
     Indication: NASOPHARYNGITIS
     Route: 048
  2. CALPOL SUGAR FREE INFANT SUSPENSION [Suspect]
     Indication: COUGH
     Route: 048

REACTIONS (1)
  - Accidental exposure to product by child [Recovered/Resolved]
